FAERS Safety Report 7623399-1 (Version None)
Quarter: 2011Q3

REPORT INFORMATION
  Report Type: 
  Country: None (occurrence: None)
  Receive Date: 20110720
  Receipt Date: 20110714
  Transmission Date: 20111222
  Serious: Yes (Other)
  Sender: FDA-Public Use
  Company Number: US-ROCHE-790327

PATIENT
  Age: 72 Year
  Sex: Female

DRUGS (1)
  1. BONIVA [Suspect]
     Dosage: TOOK EVERY OTHER MONTH
     Route: 042

REACTIONS (11)
  - INTERVERTEBRAL DISC OPERATION [None]
  - BONE DISORDER [None]
  - DYSPEPSIA [None]
  - ARTHROPATHY [None]
  - PAIN IN JAW [None]
  - RESPIRATORY DISORDER [None]
  - WEIGHT DECREASED [None]
  - ARTHRALGIA [None]
  - BONE PAIN [None]
  - MUSCLE SPASMS [None]
  - MALAISE [None]
